FAERS Safety Report 7944841-2 (Version None)
Quarter: 2011Q4

REPORT INFORMATION
  Report Type: 
  Country: None (occurrence: None)
  Receive Date: 20111129
  Receipt Date: 20111121
  Transmission Date: 20120403
  Serious: Yes (Hospitalization)
  Sender: FDA-Public Use
  Company Number: US-VERTEX PHARMACEUTICALS INC.-AE-2011-003887

PATIENT
  Sex: Female
  Weight: 67.27 kg

DRUGS (3)
  1. INCIVEK [Suspect]
     Indication: HEPATITIS C
     Route: 048
     Dates: start: 20111111, end: 20111116
  2. PEG-INTRON [Concomitant]
     Indication: HEPATITIS C
     Route: 058
  3. RIBASPHERE [Concomitant]
     Indication: HEPATITIS C
     Route: 048

REACTIONS (8)
  - HYPOTENSION [None]
  - PYREXIA [None]
  - ANAL HAEMORRHAGE [None]
  - PROCTALGIA [None]
  - DIARRHOEA [None]
  - RADIAL PULSE INCREASED [None]
  - GINGIVAL BLEEDING [None]
  - NAUSEA [None]
